FAERS Safety Report 7374841-5 (Version None)
Quarter: 2011Q1

REPORT INFORMATION
  Report Type: 
  Country: None (occurrence: None)
  Receive Date: 20110325
  Receipt Date: 20110311
  Transmission Date: 20110831
  Serious: Yes (Other)
  Sender: FDA-Public Use
  Company Number: GB-JNJFOC-20110306366

PATIENT
  Age: 39 Year
  Sex: Female

DRUGS (3)
  1. PIRITON [Concomitant]
     Indication: PREMEDICATION
     Route: 042
  2. HYDROCORTISONE [Concomitant]
     Indication: PREMEDICATION
     Route: 042
  3. REMICADE [Suspect]
     Indication: PRODUCT USED FOR UNKNOWN INDICATION
     Route: 042

REACTIONS (10)
  - INFUSION RELATED REACTION [None]
  - NAUSEA [None]
  - TREMOR [None]
  - DYSPNOEA [None]
  - BLOOD PRESSURE DECREASED [None]
  - FLUSHING [None]
  - TACHYCARDIA [None]
  - VOMITING [None]
  - FEELING HOT [None]
  - PARAESTHESIA [None]
